FAERS Safety Report 23852274 (Version 2)
Quarter: 2024Q2

REPORT INFORMATION
  Report Type: Spontaneous
  Country: CH (occurrence: CH)
  Receive Date: 20240514
  Receipt Date: 20240520
  Transmission Date: 20240716
  Serious: Yes (Death, Life-Threatening, Hospitalization, Other)
  Sender: FDA-Public Use
  Company Number: CH-Accord-423869

PATIENT
  Age: 6 Decade
  Sex: Female

DRUGS (2)
  1. CAPECITABINE [Suspect]
     Active Substance: CAPECITABINE
     Indication: Adenocarcinoma of colon
     Dosage: (1000 MG/M2) TWICE A DAY FOR 14 DAYS AND A BREAK OF 7 DAYS
  2. CAPECITABINE [Suspect]
     Active Substance: CAPECITABINE
     Indication: Colon cancer
     Dosage: (1000 MG/M2 ) TWICE A DAY FOR 14 DAYS AND A BREAK OF 7 DAYS

REACTIONS (5)
  - Necrotising colitis [Fatal]
  - Acute kidney injury [Fatal]
  - Septic shock [Fatal]
  - Ascites [Fatal]
  - Hypoalbuminaemia [Fatal]
